FAERS Safety Report 12369743 (Version 1)
Quarter: 2016Q2

REPORT INFORMATION
  Report Type: Spontaneous
  Country: US (occurrence: None)
  Receive Date: 20160513
  Receipt Date: 20160513
  Transmission Date: 20160815
  Serious: No
  Sender: FDA-Public Use
  Company Number: None

PATIENT
  Age: 39 Year
  Sex: Female

DRUGS (1)
  1. METHOTREXATE 25MG SDV [Suspect]
     Active Substance: METHOTREXATE

REACTIONS (4)
  - Malaise [None]
  - Peripheral swelling [None]
  - Nausea [None]
  - Headache [None]

NARRATIVE: CASE EVENT DATE: 20160512
